FAERS Safety Report 4363093-6 (Version None)
Quarter: 2004Q2

REPORT INFORMATION
  Report Type: 
  Country: None (occurrence: None)
  Receive Date: 20040517
  Receipt Date: 20040308
  Transmission Date: 20050107
  Serious: No
  Sender: FDA-Public Use
  Company Number: S04-USA-01772-01

PATIENT
  Age: 80 Year
  Sex: Female

DRUGS (8)
  1. NAMENDA [Suspect]
     Indication: DEMENTIA ALZHEIMER'S TYPE
     Dosage: 5 MG QD PO
     Route: 048
     Dates: start: 20040225, end: 20040302
  2. NAMENDA [Suspect]
     Indication: DEMENTIA ALZHEIMER'S TYPE
     Dosage: 10 MG QD PO
     Route: 048
     Dates: start: 20040303, end: 20040305
  3. ARICEPT [Concomitant]
  4. BUSPAR [Concomitant]
  5. REMERON (MIRTAZAPIENE ) [Concomitant]
  6. NEURONTIN [Concomitant]
  7. DIOVAN [Concomitant]
  8. DIGOXIN [Concomitant]

REACTIONS (2)
  - SOMNOLENCE [None]
  - URINARY TRACT INFECTION [None]
